FAERS Safety Report 6856504-5 (Version None)
Quarter: 2010Q3

REPORT INFORMATION
  Report Type: 
  Country: None (occurrence: None)
  Receive Date: 20100716
  Receipt Date: 20100716
  Transmission Date: 20110219
  Serious: Yes (Other)
  Sender: FDA-Public Use
  Company Number: None

PATIENT
  Age: 52 Year
  Sex: Female
  Weight: 72.5755 kg

DRUGS (2)
  1. ZOLOFT [Suspect]
     Indication: ANXIETY
     Dosage: 100MG TWICE DAILY PO
     Route: 048
     Dates: start: 20090312, end: 20100329
  2. ZOLOFT [Suspect]
     Indication: DEPRESSION
     Dosage: 100MG TWICE DAILY PO
     Route: 048
     Dates: start: 20090312, end: 20100329

REACTIONS (11)
  - ABNORMAL BEHAVIOUR [None]
  - ANGER [None]
  - ECONOMIC PROBLEM [None]
  - FAMILY STRESS [None]
  - FRUSTRATION [None]
  - HOSTILITY [None]
  - IMPULSIVE BEHAVIOUR [None]
  - JOB DISSATISFACTION [None]
  - PARTNER STRESS [None]
  - SELF-INJURIOUS IDEATION [None]
  - THINKING ABNORMAL [None]
